FAERS Safety Report 6504704-6 (Version None)
Quarter: 2009Q4

REPORT INFORMATION
  Report Type: 
  Country: None (occurrence: None)
  Receive Date: 20091218
  Receipt Date: 20091002
  Transmission Date: 20100525
  Serious: No
  Sender: FDA-Public Use
  Company Number: A0810139A

PATIENT
  Age: 69 Year
  Sex: Female

DRUGS (10)
  1. PROMACTA [Suspect]
     Indication: IDIOPATHIC THROMBOCYTOPENIC PURPURA
     Dosage: 50MG PER DAY
     Route: 048
     Dates: start: 20090828
  2. LISINOPRIL [Concomitant]
  3. HYDROCHLOROTHIAZIDE [Concomitant]
  4. POTASSIUM [Concomitant]
  5. LASIX [Concomitant]
  6. METFORMIN HCL [Concomitant]
  7. CRESTOR [Concomitant]
  8. STEROIDS [Concomitant]
  9. TYLENOL (CAPLET) [Concomitant]
  10. LANTUS [Concomitant]

REACTIONS (3)
  - BACK PAIN [None]
  - CONSTIPATION [None]
  - PAIN IN EXTREMITY [None]
